FAERS Safety Report 8588193-6 (Version None)
Quarter: 2012Q3

REPORT INFORMATION
  Report Type: 
  Country: None (occurrence: None)
  Receive Date: 20120803
  Receipt Date: 20120803
  Transmission Date: 20120928
  Serious: Yes (Hospitalization, Other)
  Sender: FDA-Public Use
  Company Number: None

PATIENT
  Age: 22 Year
  Sex: Female
  Weight: 82.5547 kg

DRUGS (1)
  1. EFFEXOR XR [Suspect]
     Indication: DEPRESSION
     Dosage: 1 CAPSULE EVERY DAY PO
     Route: 048
     Dates: start: 20120618, end: 20120728

REACTIONS (4)
  - AGITATION [None]
  - HYPOPHAGIA [None]
  - SUICIDAL IDEATION [None]
  - INSOMNIA [None]
